FAERS Safety Report 24645510 (Version 1)
Quarter: 2024Q4

REPORT INFORMATION
  Report Type: Spontaneous
  Country: US (occurrence: US)
  Receive Date: 20241121
  Receipt Date: 20241121
  Transmission Date: 20250115
  Serious: No
  Sender: ALVOGEN
  Company Number: US-ALVOGEN-2024094912

PATIENT
  Sex: Female

DRUGS (1)
  1. TERIPARATIDE [Suspect]
     Active Substance: TERIPARATIDE
     Indication: Osteoporosis
     Dosage: 20MCG/ML, DAILY?STRENGTH: 250 MCG/ML
     Route: 058
     Dates: start: 202311

REACTIONS (4)
  - Muscle discomfort [Unknown]
  - Myalgia [Unknown]
  - Limb discomfort [Unknown]
  - Pain in extremity [Unknown]
